FAERS Safety Report 7567931-5 (Version None)
Quarter: 2011Q2

REPORT INFORMATION
  Report Type: 
  Country: None (occurrence: None)
  Receive Date: 20110616
  Receipt Date: 20110608
  Transmission Date: 20111010
  Serious: Yes (Death)
  Sender: FDA-Public Use
  Company Number: 1000021115

PATIENT
  Age: 64 Year
  Sex: Female

DRUGS (16)
  1. ROFLUMILAST (ROFLUMILAST) (TABLETS) [Suspect]
     Dosage: 500 MCG (500 MCG,1 IN 1 D),ORAL
     Route: 048
     Dates: start: 20110308
  2. ALDACTONE [Concomitant]
  3. FLEXERIL (CYCLOBENZAPRINE) (CYCLOBENZAPRINE) [Concomitant]
  4. ASA (ACETYLSALICYLIC ACID) (ACETYLSALICYLIC ACID) [Concomitant]
  5. LORAZEPAM [Concomitant]
  6. SYNTHROID (LEVOTHYROXINE SODIUM) (LEVOTHYROXINE SODIUM) [Concomitant]
  7. SINGULAIR (MONTELUKAST) (MONTELUKAST) [Concomitant]
  8. LASIX [Concomitant]
  9. CRESTOR [Concomitant]
  10. PARIET (RABEPRAZOLE SODIUM) (RABEPRAZOLE SODIUM) [Concomitant]
  11. DIAMICRON (GLICLAZIDE) (GLICLAZIDE) [Concomitant]
  12. METFORMIN HCL [Concomitant]
  13. TRAMADOL HCL [Concomitant]
  14. OXAZEPAM (OXAZEPAM) (OXAZEPAM) [Concomitant]
  15. SPIRIVA (TIOTROPIUM BROMIDE) (TIOTROPIUM BROMIDE) [Concomitant]
  16. ADVAIR (SALMETEROL, FLUTICASONE) (SALMETEROL, FLUTICASONE) [Concomitant]

REACTIONS (2)
  - CHRONIC OBSTRUCTIVE PULMONARY DISEASE [None]
  - CONDITION AGGRAVATED [None]
